FAERS Safety Report 4472673-9 (Version None)
Quarter: 2004Q4

REPORT INFORMATION
  Report Type: 
  Country: None (occurrence: None)
  Receive Date: 20041008
  Receipt Date: 20040917
  Transmission Date: 20050328
  Serious: Yes (Hospitalization)
  Sender: FDA-Public Use
  Company Number: US_0409105820

PATIENT
  Age: 45 Month

DRUGS (2)
  1. VINCRISTINE SULFATE [Suspect]
     Indication: NEPHROBLASTOMA
     Dosage: 1.5 MG/M2
  2. DACTINOMYCIN [Concomitant]

REACTIONS (4)
  - ELECTROLYTE IMBALANCE [None]
  - HEPATOTOXICITY [None]
  - RENAL IMPAIRMENT [None]
  - VENOOCCLUSIVE LIVER DISEASE [None]
